FAERS Safety Report 14412622 (Version 1)
Quarter: 2018Q1

REPORT INFORMATION
  Report Type: Spontaneous
  Country: US (occurrence: US)
  Receive Date: 20180119
  Receipt Date: 20180119
  Transmission Date: 20180509
  Serious: Yes (Hospitalization)
  Sender: FDA-Public Use
  Company Number: US-PFIZER INC-2018026685

PATIENT
  Age: 55 Year
  Sex: Female
  Weight: 73 kg

DRUGS (2)
  1. RAPAMUNE [Suspect]
     Active Substance: SIROLIMUS
     Indication: LUNG TRANSPLANT
     Dosage: 2 MG, 2X/DAY
     Route: 048
     Dates: start: 2012
  2. RAPAMUNE [Suspect]
     Active Substance: SIROLIMUS
     Dosage: 2 MG, 1X/DAY (2MG TABLET, ONCE A DAY BY MOUTH) UNK, UNK
     Route: 048

REACTIONS (2)
  - Intestinal obstruction [Unknown]
  - Product use in unapproved indication [Unknown]
